FAERS Safety Report 14153184 (Version 2)
Quarter: 2017Q4

REPORT INFORMATION
  Report Type: Report from Study
  Country: US (occurrence: US)
  Receive Date: 20171102
  Receipt Date: 20171117
  Transmission Date: 20180321
  Serious: Yes (Death, Hospitalization, Other)
  Sender: FDA-Public Use
  Company Number: US-GILEAD-2017-0302534

PATIENT
  Age: 77 Year
  Sex: Female
  Weight: 77 kg

DRUGS (29)
  1. MESTINON [Concomitant]
     Active Substance: PYRIDOSTIGMINE BROMIDE
  2. VITAMIN D3 [Concomitant]
     Active Substance: CHOLECALCIFEROL
  3. LOFIBRA                            /00465701/ [Concomitant]
  4. IRON [Concomitant]
     Active Substance: IRON
  5. MAGNESIUM OXIDE. [Concomitant]
     Active Substance: MAGNESIUM OXIDE
  6. MULTIVITAMIN + MINERAL [Concomitant]
  7. VITAMIN B12 [Concomitant]
     Active Substance: CYANOCOBALAMIN
  8. KLOR-CON [Concomitant]
     Active Substance: POTASSIUM CHLORIDE
  9. NORCO [Concomitant]
     Active Substance: ACETAMINOPHEN\HYDROCODONE BITARTRATE
  10. ADCIRCA [Concomitant]
     Active Substance: TADALAFIL
  11. GLUCOPHAGE [Concomitant]
     Active Substance: METFORMIN HYDROCHLORIDE
  12. MAGNESIUM [Concomitant]
     Active Substance: MAGNESIUM
  13. FISH OIL [Concomitant]
     Active Substance: FISH OIL
  14. AMBRISENTAN [Suspect]
     Active Substance: AMBRISENTAN
     Indication: PULMONARY ARTERIAL HYPERTENSION
     Dosage: 10 MG, QD
     Route: 048
     Dates: start: 20160913
  15. MORPHINE [Concomitant]
     Active Substance: MORPHINE
  16. RANEXA [Concomitant]
     Active Substance: RANOLAZINE
  17. ASA EC [Concomitant]
     Active Substance: ASPIRIN
  18. TIKOSYN [Concomitant]
     Active Substance: DOFETILIDE
  19. LASIX [Concomitant]
     Active Substance: FUROSEMIDE
  20. ELIQUIS [Concomitant]
     Active Substance: APIXABAN
  21. AMBRISENTAN [Suspect]
     Active Substance: AMBRISENTAN
     Indication: LUNG DISORDER
  22. PRINIVIL [Concomitant]
     Active Substance: LISINOPRIL
  23. ZESTRIL [Concomitant]
     Active Substance: LISINOPRIL
  24. LEVOTHYROXINE. [Concomitant]
     Active Substance: LEVOTHYROXINE
  25. LOPRESSOR [Concomitant]
     Active Substance: METOPROLOL TARTRATE
  26. CALCIUM CARBONATE. [Concomitant]
     Active Substance: CALCIUM CARBONATE
  27. CALCIUM 500+D3 [Concomitant]
  28. MEVACOR [Concomitant]
     Active Substance: LOVASTATIN
  29. PRILOSEC [Concomitant]
     Active Substance: OMEPRAZOLE MAGNESIUM

REACTIONS (6)
  - Small intestinal obstruction [Fatal]
  - Gallstone ileus [Fatal]
  - Sepsis [Fatal]
  - Perihepatic abscess [Fatal]
  - Atrial fibrillation [Unknown]
  - Cholelithiasis [Unknown]

NARRATIVE: CASE EVENT DATE: 20171010
